FAERS Safety Report 25581459 (Version 1)
Quarter: 2025Q3

REPORT INFORMATION
  Report Type: Spontaneous
  Country: US (occurrence: US)
  Receive Date: 20250718
  Receipt Date: 20250718
  Transmission Date: 20251021
  Serious: No
  Sender: NOVO NORDISK
  Company Number: US-NOVOPROD-1384072

PATIENT
  Age: 33 Year
  Sex: Female

DRUGS (1)
  1. WEGOVY [Suspect]
     Active Substance: SEMAGLUTIDE
     Indication: Product used for unknown indication
     Dosage: UNK UNK, QW
     Dates: start: 20241202

REACTIONS (5)
  - Insomnia [Unknown]
  - Palpitations [Unknown]
  - Rash [Unknown]
  - Condition aggravated [Unknown]
  - Condition aggravated [Unknown]
